FAERS Safety Report 17600581 (Version 2)
Quarter: 2020Q2

REPORT INFORMATION
  Report Type: Spontaneous
  Country: US (occurrence: US)
  Receive Date: 20200330
  Receipt Date: 20200520
  Transmission Date: 20200713
  Serious: No
  Sender: FDA-Public Use
  Company Number: US-PFIZER INC-2020124670

PATIENT
  Age: 81 Year
  Sex: Female
  Weight: 70 kg

DRUGS (7)
  1. LYRICA [Suspect]
     Active Substance: PREGABALIN
     Indication: NEURALGIA
     Dosage: 75 MG, ALTERNATE DAY
     Route: 048
     Dates: start: 2017
  2. ACETAMINOPHEN. [Concomitant]
     Active Substance: ACETAMINOPHEN
     Indication: NERVE INJURY
     Dosage: UNK
  3. LYRICA [Suspect]
     Active Substance: PREGABALIN
     Dosage: 150 MG, DAILY (2-75MG CAPSULES IN THE MORNING DAILY)
  4. PREGABALIN. [Concomitant]
     Active Substance: PREGABALIN
     Indication: NEURALGIA
     Dosage: 75 MG, ALTERNATE DAY
     Route: 048
  5. PREGABALIN. [Concomitant]
     Active Substance: PREGABALIN
     Dosage: 75 MG, 2X/DAY
  6. ASPIRIN. [Concomitant]
     Active Substance: ASPIRIN
     Indication: NERVE INJURY
     Dosage: UNK
  7. CAFFEINE. [Concomitant]
     Active Substance: CAFFEINE
     Indication: NERVE INJURY
     Dosage: UNK

REACTIONS (1)
  - Drug ineffective [Unknown]

NARRATIVE: CASE EVENT DATE: 20200320
